FAERS Safety Report 5291445-9 (Version None)
Quarter: 2007Q2

REPORT INFORMATION
  Report Type: 
  Country: None (occurrence: None)
  Receive Date: 20070402
  Receipt Date: 20070319
  Transmission Date: 20071010
  Serious: Yes (Hospitalization)
  Sender: FDA-Public Use
  Company Number: 02100-JPN-06-0426

PATIENT
  Age: 59 Year
  Sex: Male

DRUGS (1)
  1. CILOSTAZOL [Suspect]
     Indication: CEREBRAL INFARCTION
     Dosage: 200 MG ORAL
     Route: 048
     Dates: start: 20040722, end: 20050301

REACTIONS (3)
  - EXCESSIVE GRANULATION TISSUE [None]
  - GASTROINTESTINAL EROSION [None]
  - MELAENA [None]
